FAERS Safety Report 8781006 (Version 1)
Quarter: 2012Q4

REPORT INFORMATION
  Report Type: 
  Country: US (occurrence: US)
  Receive Date: 20120913
  Receipt Date: 20120913
  Transmission Date: 20130627
  Serious: No
  Sender: FDA-Public Use
  Company Number: US-VERTEX PHARMACEUTICAL INC.-AE-2012-008136

PATIENT
  Sex: Female

DRUGS (3)
  1. INCIVEK [Suspect]
     Indication: HEPATITIS C
     Route: 048
  2. RIBAVIRIN [Concomitant]
     Indication: HEPATITIS C
  3. PEGINTERFERON [Concomitant]
     Indication: HEPATITIS C

REACTIONS (1)
  - Proctalgia [Unknown]
